FAERS Safety Report 4291005-2 (Version None)
Quarter: 2004Q1

REPORT INFORMATION
  Report Type: 
  Country: None (occurrence: None)
  Receive Date: 20040211
  Receipt Date: 20031027
  Transmission Date: 20041129
  Serious: No
  Sender: FDA-Public Use
  Company Number: US-GLAXOSMITHKLINE-A0431758A

PATIENT
  Age: 49 Year
  Sex: Female

DRUGS (7)
  1. PAXIL [Suspect]
     Indication: DEPRESSION
     Dosage: 20MG PER DAY
     Route: 048
  2. OXYCONTIN [Concomitant]
  3. VIVELLE [Concomitant]
  4. DIAZEPAM [Concomitant]
  5. TETRACYCLINE [Concomitant]
  6. SYNTHROID [Concomitant]
  7. PRINZIDE [Concomitant]

REACTIONS (1)
  - HYPERHIDROSIS [None]
